FAERS Safety Report 20072276 (Version 3)
Quarter: 2023Q1

REPORT INFORMATION
  Report Type: Spontaneous
  Country: AU (occurrence: AU)
  Receive Date: 20211116
  Receipt Date: 20230213
  Transmission Date: 20230418
  Serious: Yes (Other)
  Sender: FDA-Public Use
  Company Number: AU-JNJFOC-20211119047

PATIENT
  Sex: Female

DRUGS (1)
  1. MINOXIDIL [Suspect]
     Active Substance: MINOXIDIL
     Indication: Alopecia
     Dosage: ONCE DAILY AS ADVISED
     Route: 061
     Dates: start: 20211029, end: 2021

REACTIONS (7)
  - Hallucination [Unknown]
  - Fluid retention [Unknown]
  - Anxiety [Unknown]
  - Mood swings [Unknown]
  - Depression [Unknown]
  - Headache [Unknown]
  - Dizziness [Unknown]

NARRATIVE: CASE EVENT DATE: 20210101
